FAERS Safety Report 18339428 (Version 1)
Quarter: 2020Q4

REPORT INFORMATION
  Report Type: Spontaneous
  Country: IT (occurrence: IT)
  Receive Date: 20201002
  Receipt Date: 20201002
  Transmission Date: 20210113
  Serious: Yes (Hospitalization)
  Sender: FDA-Public Use
  Company Number: IT-PFIZER INC-2020380075

PATIENT
  Age: 83 Year
  Sex: Female
  Weight: 108 kg

DRUGS (2)
  1. LYRICA [Suspect]
     Active Substance: PREGABALIN
     Indication: BONE PAIN
     Dosage: 1 MG, 1X/DAY
     Route: 048
     Dates: start: 20200914, end: 20200914
  2. VERSATIS [Suspect]
     Active Substance: LIDOCAINE
     Indication: BONE PAIN
     Dosage: 1 UG/M2, 1X/DAY
     Route: 062
     Dates: start: 20200914, end: 20200914

REACTIONS (7)
  - Malaise [Recovering/Resolving]
  - Product use in unapproved indication [Unknown]
  - Cyanosis [Recovering/Resolving]
  - Hypotension [Recovering/Resolving]
  - Asthenia [Recovering/Resolving]
  - Dyspnoea [Recovering/Resolving]
  - Off label use [Unknown]

NARRATIVE: CASE EVENT DATE: 20200914
